FAERS Safety Report 12636778 (Version 1)
Quarter: 2016Q3

REPORT INFORMATION
  Report Type: Spontaneous
  Country: US (occurrence: US)
  Receive Date: 20160809
  Receipt Date: 20160809
  Transmission Date: 20161109
  Serious: No
  Sender: FDA-Public Use
  Company Number: US-009507513-1607USA007863

PATIENT
  Sex: Female

DRUGS (2)
  1. NUVARING [Suspect]
     Active Substance: ETHINYL ESTRADIOL\ETONOGESTREL
     Dosage: ONE INSERTION/ MONTH  (VAGINAL 0.015/0.12MG)
     Route: 067
  2. NUVARING [Suspect]
     Active Substance: ETHINYL ESTRADIOL\ETONOGESTREL
     Dosage: ONE INSERTION/ MONTH  (VAGINAL 0.015/0.12MG)
     Route: 067

REACTIONS (2)
  - Device expulsion [Unknown]
  - No adverse event [Unknown]
